FAERS Safety Report 6531395-0 (Version None)
Quarter: 2010Q1

REPORT INFORMATION
  Report Type: 
  Country: None (occurrence: None)
  Receive Date: 20100108
  Receipt Date: 20091201
  Transmission Date: 20100710
  Serious: No
  Sender: FDA-Public Use
  Company Number: A0813404A

PATIENT
  Age: 69 Year
  Sex: Female
  Weight: 47.7 kg

DRUGS (6)
  1. TYKERB [Suspect]
     Indication: BREAST CANCER
     Dosage: 5TAB PER DAY
     Route: 048
     Dates: start: 20091016
  2. ATENOLOL [Concomitant]
  3. NIFEDEX [Concomitant]
  4. THYROID TAB [Concomitant]
  5. CLARITIN-D [Concomitant]
  6. XELODA [Concomitant]
     Dosage: 2TAB CYCLIC

REACTIONS (10)
  - ASTHENIA [None]
  - CHEST PAIN [None]
  - DEPRESSION [None]
  - DYSPNOEA [None]
  - EXCORIATION [None]
  - FALL [None]
  - FATIGUE [None]
  - SENSATION OF HEAVINESS [None]
  - SINUS CONGESTION [None]
  - VOMITING [None]
